FAERS Safety Report 5585207-2 (Version None)
Quarter: 2008Q1

REPORT INFORMATION
  Report Type: 
  Country: None (occurrence: None)
  Receive Date: 20080109
  Receipt Date: 20080108
  Transmission Date: 20080703
  Serious: Yes (Hospitalization)
  Sender: FDA-Public Use
  Company Number: US-BRISTOL-MYERS SQUIBB COMPANY-13967971

PATIENT
  Age: 48 Year
  Sex: Female

DRUGS (1)
  1. TEQUIN [Suspect]
     Indication: PYELONEPHRITIS
     Dates: start: 20021122, end: 20021129

REACTIONS (3)
  - HYPERGLYCAEMIA [None]
  - MENTAL STATUS CHANGES [None]
  - RENAL FAILURE ACUTE [None]
